FAERS Safety Report 7388335 (Version 28)
Quarter: 2013Q3

REPORT INFORMATION
  Report Type: Spontaneous
  Country: US (occurrence: US)
  Receive Date: 20100514
  Receipt Date: 20130703
  Transmission Date: 20140515
  Serious: Yes (Death, Hospitalization, Other)
  Sender: FDA-Public Use
  Company Number: PHEH2010US03420

PATIENT
  Age: 61 Year
  Sex: Female
  Weight: 78.46 kg

DRUGS (55)
  1. AREDIA [Suspect]
     Indication: METASTASES TO BONE
     Dosage: 90 MG
     Route: 042
     Dates: start: 20030305, end: 200607
  2. ZOMETA [Suspect]
     Indication: BREAST CANCER METASTATIC
  3. ARIMIDEX [Concomitant]
     Indication: BREAST CANCER
     Dosage: 1 DF, QD
     Route: 048
  4. DIOVAN [Concomitant]
  5. ADVAIR [Concomitant]
  6. OXYCODONE [Concomitant]
  7. CLINDAMYCIN [Concomitant]
  8. OXYCONTIN [Concomitant]
     Dosage: 80 MG, PRN
  9. ULTRACET [Concomitant]
  10. PAXIL [Concomitant]
  11. EFFEXOR [Concomitant]
  12. BELLERGAL [Concomitant]
     Dosage: 1 DF, QD
     Route: 048
  13. CLONIDINE [Concomitant]
  14. PROZAC [Concomitant]
     Dosage: 1 DF, PRN
  15. VICODIN [Concomitant]
     Dosage: 1 DF, PRN
  16. DURAGESIC [Concomitant]
     Dosage: 2 MG, PRN
  17. NAXIDIN [Concomitant]
  18. ACEPHEN [Concomitant]
     Dosage: 1 DF, QD
  19. FENERGAN [Concomitant]
  20. ANTACIDS [Concomitant]
  21. PREDNISONE [Concomitant]
     Dosage: 80 MG, QD
  22. LASIX [Concomitant]
  23. MORPHINE [Concomitant]
  24. FENTANYL [Concomitant]
  25. DILAUDID [Concomitant]
  26. SENOKOT [Concomitant]
     Indication: CONSTIPATION
  27. LOTENSIN [Concomitant]
     Dosage: 10 MG, UNK
     Route: 048
  28. SOMA [Concomitant]
     Indication: MUSCLE SPASMS
     Dosage: 350 MG, TID
     Route: 048
  29. ADVIL [Concomitant]
  30. ADRIAMYCIN [Concomitant]
  31. CYTOXAN [Concomitant]
  32. CLEOCIN [Concomitant]
  33. ASMANEX [Concomitant]
  34. PROVENTIL [Concomitant]
  35. PRILOSEC [Concomitant]
     Dosage: 20 MG, QD
     Route: 048
  36. WELLBUTRIN [Concomitant]
     Dosage: 150 MG, BID
     Route: 048
  37. MAXZIDE [Concomitant]
     Dosage: 25 MG, DAILY
  38. SCOPOLAMINE [Concomitant]
     Dosage: 105 MG, EVERY 72 HRS
  39. FIBERCON [Concomitant]
  40. PHENERGAN ^AVENTIS PHARMA^ [Concomitant]
     Dosage: 50 MG, BID
  41. CALCIUM WITH VITAMIN D [Concomitant]
  42. PROTONIX ^PHARMACIA^ [Concomitant]
  43. LEXAPRO [Concomitant]
  44. PREVACID [Concomitant]
  45. ASPIRIN ^BAYER^ [Concomitant]
  46. HYZAAR [Concomitant]
  47. WELLBUTRIN                         /00700502/ [Concomitant]
  48. FLUOXETINE [Concomitant]
     Dosage: 40 MG, QD
  49. ALEVE [Concomitant]
  50. PROVERA [Concomitant]
  51. COMBIPATCH [Concomitant]
  52. TESTOSTERONE [Concomitant]
  53. AZITHROMYCIN [Concomitant]
  54. ALBUTEROL SULFATE [Concomitant]
  55. LISINOPRIL/HCTZ [Concomitant]

REACTIONS (151)
  - Death [Fatal]
  - Bladder neoplasm [Unknown]
  - Ileus [Unknown]
  - Device related infection [Unknown]
  - Osteonecrosis of jaw [Unknown]
  - Injury [Unknown]
  - Disability [Unknown]
  - Pain [Unknown]
  - Anxiety [Unknown]
  - Anhedonia [Unknown]
  - Tooth fracture [Unknown]
  - Gingival erosion [Unknown]
  - Gingival oedema [Unknown]
  - Dental caries [Unknown]
  - Tooth abscess [Unknown]
  - Oral pain [Unknown]
  - Periodontal disease [Unknown]
  - Osteonecrosis [Unknown]
  - Dental plaque [Unknown]
  - Swelling face [Unknown]
  - Tooth deposit [Unknown]
  - Metastases to bone [Unknown]
  - Bone lesion [Unknown]
  - Rib fracture [Unknown]
  - Bone pain [Unknown]
  - Spinal fracture [Unknown]
  - Back pain [Unknown]
  - Metastases to spine [Unknown]
  - Osteoarthritis [Unknown]
  - Arthritis [Unknown]
  - Wheelchair user [Unknown]
  - Gait disturbance [Unknown]
  - Pelvi-ureteric obstruction [Unknown]
  - Hydronephrosis [Unknown]
  - Hiatus hernia [Unknown]
  - Hot flush [Unknown]
  - Staphylococcal infection [Unknown]
  - Bone disorder [Unknown]
  - Road traffic accident [Unknown]
  - Chest pain [Unknown]
  - Breast cancer recurrent [Unknown]
  - Emphysema [Unknown]
  - Diverticulum [Unknown]
  - Haematuria [Unknown]
  - Bronchitis [Unknown]
  - Urinary tract infection [Unknown]
  - Infection [Unknown]
  - Pulmonary mass [Unknown]
  - Lipoma [Unknown]
  - Pyelocaliectasis [Unknown]
  - Fall [Unknown]
  - Meniscus injury [Unknown]
  - Diplopia [Unknown]
  - Scoliosis [Unknown]
  - Iron deficiency anaemia [Recovered/Resolved]
  - Breathing-related sleep disorder [Unknown]
  - Dysgeusia [Unknown]
  - Renal cyst [Unknown]
  - Kyphosis [Unknown]
  - Bruxism [Unknown]
  - Bursitis [Unknown]
  - Contusion [Unknown]
  - Barrett^s oesophagus [Unknown]
  - Ligament sprain [Unknown]
  - Muscle strain [Unknown]
  - Hypercalcaemia [Unknown]
  - Pathological fracture [Unknown]
  - Tooth loss [Unknown]
  - Osteoporosis [Unknown]
  - Joint effusion [Unknown]
  - Lymphadenopathy [Unknown]
  - Gastrointestinal haemorrhage [Unknown]
  - Chronic obstructive pulmonary disease [Recovering/Resolving]
  - Dyspnoea [Unknown]
  - Oedema peripheral [Unknown]
  - Prothrombin time prolonged [Unknown]
  - Drug hypersensitivity [Unknown]
  - Chills [Unknown]
  - Nasal congestion [Unknown]
  - Vomiting [Unknown]
  - Diarrhoea [Unknown]
  - Dysuria [Unknown]
  - Flank pain [Unknown]
  - Skin lesion [Unknown]
  - Dizziness [Unknown]
  - Deep vein thrombosis [Unknown]
  - Thoracic vertebral fracture [Unknown]
  - Vertebral wedging [Unknown]
  - Intervertebral disc degeneration [Unknown]
  - Intervertebral disc space narrowing [Unknown]
  - Intervertebral disc protrusion [Unknown]
  - Large intestine polyp [Unknown]
  - Melanocytic naevus [Unknown]
  - Dermal cyst [Unknown]
  - Atrial fibrillation [Unknown]
  - Aortic disorder [Unknown]
  - Pulmonary embolism [Unknown]
  - Respiratory distress [Unknown]
  - Osteosclerosis [Unknown]
  - Lumbar spine flattening [Unknown]
  - Hypokalaemia [Unknown]
  - Haematoma [Unknown]
  - Breast swelling [Unknown]
  - Breast calcifications [Unknown]
  - Diaphragmatic hernia [Unknown]
  - Cardiomegaly [Unknown]
  - Tachycardia [Unknown]
  - Leukocytosis [Unknown]
  - Pleural effusion [Unknown]
  - Hepatic lesion [Unknown]
  - Hilar lymphadenopathy [Unknown]
  - Metastases to liver [Not Recovered/Not Resolved]
  - Lung neoplasm malignant [Unknown]
  - Second primary malignancy [Unknown]
  - Hypoxia [Unknown]
  - Swollen tongue [Unknown]
  - Osteopenia [Unknown]
  - Lung consolidation [Unknown]
  - Respiratory failure [Unknown]
  - Septic shock [Unknown]
  - Renal failure [Unknown]
  - Sepsis [Unknown]
  - Psychotic disorder [Unknown]
  - Urinary retention [Unknown]
  - Electrolyte imbalance [Unknown]
  - Aortic calcification [Unknown]
  - Arteriosclerosis coronary artery [Unknown]
  - Mouth haemorrhage [Unknown]
  - Headache [Unknown]
  - Musculoskeletal chest pain [Unknown]
  - Musculoskeletal pain [Unknown]
  - Bloody discharge [Unknown]
  - Exposed bone in jaw [Unknown]
  - Joint swelling [Unknown]
  - Arthralgia [Unknown]
  - Pain in jaw [Unknown]
  - Claustrophobia [Unknown]
  - Osteitis [Unknown]
  - Hyperparathyroidism [Unknown]
  - Breast cancer metastatic [Unknown]
  - Malignant neoplasm progression [Unknown]
  - Hyponatraemia [Unknown]
  - Hyperkalaemia [Unknown]
  - Pneumonitis [Unknown]
  - Acidosis [Unknown]
  - Colon adenoma [Unknown]
  - Osteitis deformans [Unknown]
  - Skin mass [Unknown]
  - Lung infiltration [Unknown]
  - Muscle atrophy [Unknown]
  - Rales [Unknown]
